FAERS Safety Report 6623925-5 (Version None)
Quarter: 2010Q1

REPORT INFORMATION
  Report Type: 
  Country: None (occurrence: None)
  Receive Date: 20100304
  Receipt Date: 20100219
  Transmission Date: 20100710
  Serious: Yes (Hospitalization)
  Sender: FDA-Public Use
  Company Number: 1000012189

PATIENT
  Age: 88 Year
  Sex: Female

DRUGS (12)
  1. ESCITALOPRAM OXALATE [Suspect]
     Indication: MAJOR DEPRESSION
     Dosage: 10 MG (10 MG, 1 IN 1 D), ORAL
     Route: 048
     Dates: end: 20090409
  2. OMEPRAZOLE [Suspect]
     Dosage: 40 MG, ORAL
     Route: 048
  3. SPIRONOLACTONE [Suspect]
     Dosage: 25 MG, ORAL
     Route: 048
  4. ATACAND [Suspect]
     Dosage: 16 MG, ORAL
     Route: 048
  5. LEVOTHYROXINE SODIUM [Concomitant]
  6. METAMIZOL [Concomitant]
  7. CARMEN [Concomitant]
  8. METFORMIN HCL [Concomitant]
  9. ASPIRIN [Concomitant]
  10. SOTALOL HCL [Concomitant]
  11. DICLOFENAC [Concomitant]
  12. NITROSPRAY [Concomitant]

REACTIONS (5)
  - BLOOD CREATININE INCREASED [None]
  - BLOOD GLUCOSE INCREASED [None]
  - DRUG INTERACTION [None]
  - GAMMA-GLUTAMYLTRANSFERASE INCREASED [None]
  - HYPONATRAEMIA [None]
